FAERS Safety Report 6121301-5 (Version None)
Quarter: 2009Q1

REPORT INFORMATION
  Report Type: 
  Country: None (occurrence: None)
  Receive Date: 20090312
  Receipt Date: 20090312
  Transmission Date: 20090719
  Serious: No
  Sender: FDA-Public Use
  Company Number: None

PATIENT
  Age: 67 Year
  Sex: Female
  Weight: 74.8435 kg

DRUGS (1)
  1. ACEBUTOLOL [Suspect]
     Indication: SUPRAVENTRICULAR EXTRASYSTOLES
     Dosage: 200 MG TWICE DAILY PO
     Route: 048
     Dates: start: 20090215, end: 20090309

REACTIONS (3)
  - ARTHRALGIA [None]
  - BONE PAIN [None]
  - INADEQUATE ANALGESIA [None]
